FAERS Safety Report 5389262-4 (Version None)
Quarter: 2007Q3

REPORT INFORMATION
  Report Type: 
  Country: None (occurrence: None)
  Receive Date: 20070717
  Receipt Date: 20070710
  Transmission Date: 20080115
  Serious: Yes (Other)
  Sender: FDA-Public Use
  Company Number: B0479223A

PATIENT
  Age: 80 Year
  Sex: Female

DRUGS (3)
  1. AUGMENTIN '125' [Suspect]
     Indication: DRUG USE FOR UNKNOWN INDICATION
     Route: 065
     Dates: start: 20070501, end: 20070601
  2. BATH OIL (UNSPECIFIED) [Concomitant]
     Dates: start: 20070401
  3. UNKNOWN ANTIBIOTHERAPY [Concomitant]

REACTIONS (3)
  - FUNGAL INFECTION [None]
  - SKIN IRRITATION [None]
  - STOMATITIS NECROTISING [None]
